FAERS Safety Report 6621968-9 (Version None)
Quarter: 2010Q1

REPORT INFORMATION
  Report Type: 
  Country: None (occurrence: None)
  Receive Date: 20100223
  Receipt Date: 20091222
  Transmission Date: 20100710
  Serious: No
  Sender: FDA-Public Use
  Company Number: 003862

PATIENT
  Sex: Female
  Weight: 39.9165 kg

DRUGS (1)
  1. CIMZIA [Suspect]
     Indication: CROHN'S DISEASE
     Dosage: 400 MG 1X/2 WEEKS SUBCUTANEOUS
     Route: 058
     Dates: start: 20090902

REACTIONS (3)
  - ABDOMINAL PAIN [None]
  - CACHEXIA [None]
  - INAPPROPRIATE SCHEDULE OF DRUG ADMINISTRATION [None]
